FAERS Safety Report 9783147 (Version 2)
Quarter: 2013Q4

REPORT INFORMATION
  Report Type: Spontaneous
  Country: JP (occurrence: JP)
  Receive Date: 20131226
  Receipt Date: 20131226
  Transmission Date: 20140711
  Serious: Yes (Other)
  Sender: FDA-Public Use
  Company Number: JP-ELI_LILLY_AND_COMPANY-JP_030701391

PATIENT
  Age: 54 Year
  Sex: Male

DRUGS (1)
  1. ZYPREXA [Suspect]
     Indication: DELIRIUM
     Dosage: 2.5 MG, EACH EVENING
     Route: 048
     Dates: start: 20020126, end: 20020207

REACTIONS (2)
  - Hypothermia [Recovered/Resolved]
  - Delirium [Recovering/Resolving]
